FAERS Safety Report 7990960-4 (Version None)
Quarter: 2011Q4

REPORT INFORMATION
  Report Type: 
  Country: None (occurrence: None)
  Receive Date: 20111219
  Receipt Date: 20111215
  Transmission Date: 20120403
  Serious: Yes (Hospitalization)
  Sender: FDA-Public Use
  Company Number: US-ROCHE-1022834

PATIENT
  Age: 69 Year
  Sex: Female
  Weight: 52 kg

DRUGS (2)
  1. AVASTIN [Suspect]
     Indication: HEPATIC NEOPLASM MALIGNANT
     Dosage: 10MG/ KG IV OVER 30-90 MIN ON DAYS 1 AND 15
     Route: 042
     Dates: start: 20110812
  2. TEMSIROLIMUS [Suspect]
     Indication: HEPATIC NEOPLASM MALIGNANT
     Dosage: 25MG ON DAYS 1,8, 15, 22, TEMPORARILY INTERRUPTED
     Route: 042
     Dates: start: 20110812

REACTIONS (5)
  - PYREXIA [None]
  - NAUSEA [None]
  - CHILLS [None]
  - ABDOMINAL PAIN [None]
  - VOMITING [None]
